FAERS Safety Report 12525524 (Version 2)
Quarter: 2016Q3

REPORT INFORMATION
  Report Type: Spontaneous
  Country: US (occurrence: US)
  Receive Date: 20160704
  Receipt Date: 20160707
  Transmission Date: 20161109
  Serious: Yes (Other)
  Sender: FDA-Public Use
  Company Number: US-AMGEN-USASP2016085056

PATIENT
  Age: 59 Year
  Sex: Female

DRUGS (1)
  1. ENBREL [Suspect]
     Active Substance: ETANERCEPT
     Indication: RHEUMATOID ARTHRITIS
     Dosage: UNK UNK, QWK
     Route: 065
     Dates: start: 2002, end: 2016

REACTIONS (34)
  - Rheumatoid arthritis [Recovered/Resolved]
  - Gallbladder cancer [Unknown]
  - Wheezing [Unknown]
  - Hypoaesthesia [Unknown]
  - Vision blurred [Unknown]
  - Blood alkaline phosphatase increased [Unknown]
  - Rotator cuff syndrome [Unknown]
  - Delirium [Unknown]
  - Swollen tongue [Unknown]
  - Sleep apnoea syndrome [Unknown]
  - Hepatic enzyme increased [Unknown]
  - Arthropathy [Unknown]
  - Skeletal injury [Unknown]
  - Respiratory disorder [Unknown]
  - Balance disorder [Unknown]
  - Nocturia [Unknown]
  - Pain [Unknown]
  - Feeling abnormal [Unknown]
  - Fall [Unknown]
  - Surgery [Unknown]
  - Insomnia [Unknown]
  - Osteitis deformans [Unknown]
  - Nasal congestion [Unknown]
  - Bone loss [Unknown]
  - Traumatic shock [Unknown]
  - Oxygen saturation decreased [Unknown]
  - Lacrimation increased [Unknown]
  - Fatigue [Unknown]
  - Diplopia [Unknown]
  - Joint injury [Unknown]
  - Limb operation [Unknown]
  - Apparent death [Unknown]
  - Chronic obstructive pulmonary disease [Unknown]
  - Paraesthesia [Unknown]

NARRATIVE: CASE EVENT DATE: 2016
